FAERS Safety Report 9075034 (Version 1)
Quarter: 2013Q1

REPORT INFORMATION
  Report Type: Report from Study
  Country: US (occurrence: US)
  Receive Date: 20130129
  Receipt Date: 20130129
  Transmission Date: 20140127
  Serious: No
  Sender: FDA-Public Use
  Company Number: US-ABBOTT-12P-163-0925777-00

PATIENT
  Age: 47 Year
  Sex: Female

DRUGS (9)
  1. HUMIRA 40 MG/0.8 ML PEN [Suspect]
     Indication: CROHN^S DISEASE
     Dosage: LOADING DOSE
     Dates: start: 20120411, end: 20120411
  2. HUMIRA 40 MG/0.8 ML PEN [Suspect]
  3. LIALDA [Concomitant]
     Indication: POST-TRAUMATIC STRESS DISORDER
  4. WELLBUTRIN [Concomitant]
     Indication: POST-TRAUMATIC STRESS DISORDER
  5. EFFEXOR [Concomitant]
     Indication: POST-TRAUMATIC STRESS DISORDER
  6. GABAPENTIN [Concomitant]
     Indication: PRODUCT USED FOR UNKNOWN INDICATION
  7. NORCO [Concomitant]
     Indication: NECK PAIN
     Dosage: 325/10
  8. NORCO [Concomitant]
     Indication: NERVOUS SYSTEM DISORDER
  9. TRAZADONE [Concomitant]
     Indication: INSOMNIA
     Dosage: 50MG

REACTIONS (1)
  - Injection site pain [Recovering/Resolving]
